FAERS Safety Report 11061239 (Version 1)
Quarter: 2015Q2

REPORT INFORMATION
  Report Type: Spontaneous
  Country: None (occurrence: None)
  Receive Date: 20150423
  Receipt Date: 20150423
  Transmission Date: 20150821
  Serious: Yes (Death, Other)
  Sender: FDA-Public Use
  Company Number: None

PATIENT
  Age: 62 Year
  Sex: Male

DRUGS (2)
  1. ASTHALIN [Suspect]
     Active Substance: ALBUTEROL
     Indication: ASTHMA
  2. SEREVENT DISKUS [Suspect]
     Active Substance: SALMETEROL XINAFOATE
     Indication: ASTHMA
     Route: 055

REACTIONS (10)
  - Weight decreased [None]
  - Product contamination physical [None]
  - Loss of consciousness [None]
  - Abdominal pain upper [None]
  - Product container issue [None]
  - Anaemia [None]
  - Fall [None]
  - Decreased appetite [None]
  - Gastric cancer [None]
  - Economic problem [None]
